FAERS Safety Report 15386749 (Version 2)
Quarter: 2025Q1

REPORT INFORMATION
  Report Type: Spontaneous
  Country: DE (occurrence: DE)
  Receive Date: 20180914
  Receipt Date: 20250203
  Transmission Date: 20250409
  Serious: Yes (Hospitalization, Disabling, Other)
  Sender: SANOFI AVENTIS
  Company Number: DE-SA-2014SA053067

PATIENT
  Age: 52 Year
  Sex: Female

DRUGS (10)
  1. ALEMTUZUMAB [Suspect]
     Active Substance: ALEMTUZUMAB
     Indication: Small intestine transplant
     Dosage: 30 MG, QD (D 0 AND 1)
     Route: 065
     Dates: start: 201111, end: 201111
  2. MYCOPHENOLATE MOFETIL [Suspect]
     Active Substance: MYCOPHENOLATE MOFETIL
     Indication: Small intestine transplant
     Dosage: 2000 MG,QD
     Route: 065
     Dates: end: 201205
  3. PREDNISOLONE [Suspect]
     Active Substance: PREDNISOLONE
     Indication: Small intestine transplant
     Route: 065
  4. PREDNISOLONE [Suspect]
     Active Substance: PREDNISOLONE
     Indication: Intestine transplant rejection
     Dosage: 5 MG, QD (TAPERED DOWN TO A MAINTENANCE DOSE)
     Dates: end: 201205
  5. PREDNISOLONE [Suspect]
     Active Substance: PREDNISOLONE
     Dosage: 250 MG, QD
     Dates: start: 201210, end: 201210
  6. TACROLIMUS [Suspect]
     Active Substance: TACROLIMUS
     Indication: Small intestine transplant
     Route: 065
     Dates: end: 201205
  7. TACROLIMUS [Suspect]
     Active Substance: TACROLIMUS
     Dates: start: 201205
  8. VALGANCICLOVIR [Concomitant]
     Active Substance: VALGANCICLOVIR
     Indication: Antiviral prophylaxis
     Dosage: 900 MG,QD
     Route: 065
     Dates: start: 2011
  9. VALGANCICLOVIR [Concomitant]
     Active Substance: VALGANCICLOVIR
     Dates: start: 201207, end: 2012
  10. VALGANCICLOVIR [Concomitant]
     Active Substance: VALGANCICLOVIR
     Dates: start: 201212

REACTIONS (19)
  - Intestine transplant rejection [Unknown]
  - Gastrointestinal scarring [Unknown]
  - Gastrointestinal anastomotic stenosis [Unknown]
  - Gastric ulcer [Unknown]
  - Gastritis erosive [Unknown]
  - Abdominal pain [Unknown]
  - Organ failure [Unknown]
  - Leukaemia [Unknown]
  - Cytomegalovirus infection [Recovering/Resolving]
  - Cytomegalovirus oesophagitis [Recovering/Resolving]
  - Ulcerative gastritis [Recovering/Resolving]
  - Diarrhoea [Recovering/Resolving]
  - Pyrexia [Recovering/Resolving]
  - Odynophagia [Recovering/Resolving]
  - Oesophagitis ulcerative [Recovering/Resolving]
  - Malaise [Recovering/Resolving]
  - Vomiting [Recovering/Resolving]
  - Oesophageal candidiasis [Recovered/Resolved]
  - Off label use [Unknown]

NARRATIVE: CASE EVENT DATE: 20120101
